FAERS Safety Report 4718234-5 (Version None)
Quarter: 2005Q3

REPORT INFORMATION
  Report Type: 
  Country: None (occurrence: None)
  Receive Date: 20050719
  Receipt Date: 20050104
  Transmission Date: 20060218
  Serious: No
  Sender: FDA-Public Use
  Company Number: A-US2005-08490

PATIENT
  Age: 67 Year
  Sex: Female
  Weight: 64.4 kg

DRUGS (11)
  1. TRACLEER [Suspect]
     Indication: PULMONARY HYPERTENSION
     Dosage: 62.5 MG, BID, ORAL
     Route: 048
     Dates: start: 20041124, end: 20041208
  2. LASIX [Concomitant]
  3. KCL-RETARD (POTASSUM CHLORIDE) [Concomitant]
  4. ORAMORPH SR [Concomitant]
  5. PREDNISONE [Concomitant]
  6. FIORINAL (CAFFEINE, BUTALBITAL, ACETYLSALICYLIC ACID) [Concomitant]
  7. AZULFIDINE [Concomitant]
  8. PAXIL [Concomitant]
  9. LEVOTHYROXINE SODIUM [Concomitant]
  10. PREMARIN [Concomitant]
  11. FOSAMAX (ALNEDRONATE SODIUM) [Concomitant]

REACTIONS (9)
  - ALANINE AMINOTRANSFERASE INCREASED [None]
  - ASCITES [None]
  - ASPARTATE AMINOTRANSFERASE INCREASED [None]
  - BLOOD ALKALINE PHOSPHATASE INCREASED [None]
  - BLOOD BILIRUBIN INCREASED [None]
  - GAMMA-GLUTAMYLTRANSFERASE INCREASED [None]
  - LIVER FUNCTION TEST ABNORMAL [None]
  - MYOCLONUS [None]
  - OEDEMA PERIPHERAL [None]
